FAERS Safety Report 6625884-8 (Version None)
Quarter: 2010Q1

REPORT INFORMATION
  Report Type: 
  Country: None (occurrence: None)
  Receive Date: 20100310
  Receipt Date: 20100308
  Transmission Date: 20100710
  Serious: Yes (Disabling, Other)
  Sender: FDA-Public Use
  Company Number: HU-SANOFI-AVENTIS-200919454GDDC

PATIENT
  Sex: Male
  Weight: 82 kg

DRUGS (7)
  1. INSULIN GLARGINE [Suspect]
     Indication: DIABETES MELLITUS
     Route: 058
     Dates: start: 20080501
  2. ORAL ANTIDIABETICS [Concomitant]
  3. AMARYL [Concomitant]
     Indication: DIABETES MELLITUS
     Route: 048
     Dates: start: 20070101
  4. ASPIRIN [Concomitant]
     Route: 048
     Dates: start: 20080101
  5. TRENTAL ^ROUSSEL^ [Concomitant]
     Route: 048
     Dates: start: 20080101
  6. COVEREX [Concomitant]
     Indication: HYPERTENSION
     Route: 048
     Dates: start: 20080101
  7. ATORVASTATIN CALCIUM [Concomitant]
     Route: 047
     Dates: start: 20080101

REACTIONS (1)
  - BLADDER NEOPLASM [None]
